FAERS Safety Report 8023505 (Version 4)
Quarter: 2013Q2

REPORT INFORMATION
  Report Type: Spontaneous
  Country: US (occurrence: US)
  Receive Date: 20110706
  Receipt Date: 20130408
  Transmission Date: 20140414
  Serious: Yes (Other)
  Sender: FDA-Public Use
  Company Number: US-ROCHE-786774

PATIENT
  Sex: Male
  Weight: 77.1 kg

DRUGS (2)
  1. ACCUTANE [Suspect]
     Indication: ACNE
     Dosage: BETWEEN 1993 AND 1997
     Route: 048
  2. ACCUTANE [Suspect]
     Route: 048

REACTIONS (3)
  - Colitis ulcerative [Unknown]
  - Injury [Unknown]
  - Inflammatory bowel disease [Unknown]
